FAERS Safety Report 9976047 (Version 1)
Quarter: 2014Q1

REPORT INFORMATION
  Report Type: Spontaneous
  Country: CG (occurrence: CG)
  Receive Date: 20140306
  Receipt Date: 20140306
  Transmission Date: 20141002
  Serious: Yes (Hospitalization)
  Sender: FDA-Public Use
  Company Number: CG-009507513-1402COG012378

PATIENT
  Age: 74 Year
  Sex: Male
  Weight: 80 kg

DRUGS (1)
  1. IVERMECTIN [Suspect]
     Indication: ONCHOCERCIASIS
     Dosage: 4 TABLETS ADMINISTERED
     Route: 048
     Dates: start: 20131118

REACTIONS (6)
  - Urinary incontinence [Recovered/Resolved]
  - Coma scale abnormal [Recovered/Resolved]
  - Wound [Recovered/Resolved]
  - Wound infection [Recovered/Resolved]
  - Nervous system disorder [Recovered/Resolved]
  - Bladder catheterisation [Recovered/Resolved]
